FAERS Safety Report 4991539-9 (Version None)
Quarter: 2006Q2

REPORT INFORMATION
  Report Type: 
  Country: None (occurrence: None)
  Receive Date: 20060502
  Receipt Date: 20060427
  Transmission Date: 20061013
  Serious: Yes (Other)
  Sender: FDA-Public Use
  Company Number: 2006S1000008

PATIENT
  Age: 53 Year
  Sex: Male

DRUGS (18)
  1. CUBICIN [Suspect]
     Indication: ENDOCARDITIS STAPHYLOCOCCAL
     Dosage: 440 MG;Q24H; IV
     Route: 042
     Dates: start: 20051225, end: 20060106
  2. CUBICIN [Suspect]
     Indication: EXTRADURAL ABSCESS
     Dosage: 440 MG;Q24H; IV
     Route: 042
     Dates: start: 20051225, end: 20060106
  3. CUBICIN [Suspect]
     Indication: STAPHYLOCOCCAL INFECTION
     Dosage: 440 MG;Q24H; IV
     Route: 042
     Dates: start: 20051225, end: 20060106
  4. CUBICIN [Suspect]
     Indication: VASCULAR BYPASS GRAFT
     Dosage: 440 MG;Q24H; IV
     Route: 042
     Dates: start: 20051225, end: 20060106
  5. ETHACRYNIC ACID [Concomitant]
  6. INSULIN [Concomitant]
  7. MEGACE [Concomitant]
  8. VICODIN [Concomitant]
  9. HYDROMORPHONE HCL [Concomitant]
  10. METHOCARBAMOL [Concomitant]
  11. ALPRAZOLAM [Concomitant]
  12. DIPHENHYDRAMINE HCL [Concomitant]
  13. IRON [Concomitant]
  14. NYSTATIN [Concomitant]
  15. VANCOMYCIN [Concomitant]
  16. LEVOFLOXACIN [Concomitant]
  17. RIFAMPIN [Concomitant]
  18. GENTAMICIN [Concomitant]

REACTIONS (2)
  - ANAEMIA [None]
  - NEPHRITIS INTERSTITIAL [None]
